FAERS Safety Report 9076205 (Version 1)
Quarter: 2013Q1

REPORT INFORMATION
  Report Type: Spontaneous
  Country: AU (occurrence: AU)
  Receive Date: 20130131
  Receipt Date: 20130131
  Transmission Date: 20140127
  Serious: Yes (Death)
  Sender: FDA-Public Use
  Company Number: AU-ACTELION-A-CH2013-78361

PATIENT
  Age: 80 Year
  Sex: Female

DRUGS (8)
  1. TRACLEER [Suspect]
     Indication: PULMONARY ARTERIAL HYPERTENSION
     Dosage: 125 MG, BID
     Route: 048
     Dates: start: 20081128, end: 20130103
  2. TRACLEER [Suspect]
     Dosage: 62.5 MG, BID
     Route: 048
     Dates: start: 20081028, end: 20081127
  3. SILDENAFIL [Concomitant]
  4. WARFARIN [Concomitant]
  5. THYROXINE [Concomitant]
  6. PRAVASTATIN [Concomitant]
  7. PLAVIX [Concomitant]
  8. OMEGA 3 [Concomitant]

REACTIONS (1)
  - Death [Fatal]
